FAERS Safety Report 6781763-7 (Version None)
Quarter: 2010Q2

REPORT INFORMATION
  Report Type: 
  Country: None (occurrence: None)
  Receive Date: 20100618
  Receipt Date: 20100618
  Transmission Date: 20101027
  Serious: No
  Sender: FDA-Public Use
  Company Number: None

PATIENT
  Age: 62 Year
  Sex: Male
  Weight: 108.86 kg

DRUGS (1)
  1. SERTRALINE HCL [Suspect]
     Indication: DEPRESSION
     Dosage: 50 MG EVERY DAY PO
     Route: 048
     Dates: start: 20090708, end: 20100420

REACTIONS (3)
  - AGGRESSION [None]
  - AGITATION [None]
  - SUICIDAL IDEATION [None]
